FAERS Safety Report 10853765 (Version 2)
Quarter: 2015Q1

REPORT INFORMATION
  Report Type: Spontaneous
  Country: NZ (occurrence: NZ)
  Receive Date: 20150223
  Receipt Date: 20150330
  Transmission Date: 20150721
  Serious: Yes (Other)
  Sender: FDA-Public Use
  Company Number: NZ-JNJFOC-20150212166

PATIENT
  Age: 52 Year
  Sex: Male

DRUGS (6)
  1. XARELTO [Suspect]
     Active Substance: RIVAROXABAN
     Indication: EMBOLISM VENOUS
     Route: 048
     Dates: start: 2014, end: 20150220
  2. XARELTO [Suspect]
     Active Substance: RIVAROXABAN
     Indication: EMBOLISM VENOUS
     Route: 048
     Dates: start: 20141105
  3. XARELTO [Suspect]
     Active Substance: RIVAROXABAN
     Indication: UNEVALUABLE EVENT
     Route: 048
     Dates: start: 2014, end: 20150220
  4. XARELTO [Suspect]
     Active Substance: RIVAROXABAN
     Indication: PULMONARY EMBOLISM
     Route: 048
     Dates: start: 2014, end: 20150220
  5. XARELTO [Suspect]
     Active Substance: RIVAROXABAN
     Indication: PULMONARY EMBOLISM
     Route: 048
     Dates: start: 20141105
  6. XARELTO [Suspect]
     Active Substance: RIVAROXABAN
     Indication: UNEVALUABLE EVENT
     Route: 048
     Dates: start: 20141105

REACTIONS (3)
  - Neuropathy peripheral [Recovered/Resolved]
  - Arthralgia [Unknown]
  - Pain in extremity [Unknown]

NARRATIVE: CASE EVENT DATE: 20150209
